FAERS Safety Report 5719907-8 (Version None)
Quarter: 2008Q2

REPORT INFORMATION
  Report Type: 
  Country: None (occurrence: None)
  Receive Date: 20080428
  Receipt Date: 20080415
  Transmission Date: 20081010
  Serious: Yes (Death)
  Sender: FDA-Public Use
  Company Number: DE-ROCHE-558826

PATIENT
  Sex: Female
  Weight: 44 kg

DRUGS (2)
  1. CAPECITABINE [Suspect]
     Indication: PANCREATIC CARCINOMA
     Dosage: GIVEN ON DAYS 1-14 OF 21 DAY CYCLE AS PER PROTOCOL.
     Route: 048
  2. GEMCITABINE [Suspect]
     Indication: PANCREATIC CARCINOMA
     Dosage: GIVEN WEEKLY, UNTIL WEEK 9 WHEN IT IS GIVEN ON 1, 8, 15 OF 28 DAY CYCLE
     Route: 065

REACTIONS (1)
  - DEATH [None]
